FAERS Safety Report 10602152 (Version 7)
Quarter: 2015Q3

REPORT INFORMATION
  Report Type: Report from Study
  Country: FR (occurrence: FR)
  Receive Date: 20141124
  Receipt Date: 20150902
  Transmission Date: 20151125
  Serious: Yes (Death, Disabling, Other)
  Sender: FDA-Public Use
  Company Number: PHHY2013FR147700

PATIENT
  Age: 78 Year
  Sex: Male
  Weight: 72 kg

DRUGS (8)
  1. EXJADE [Suspect]
     Active Substance: DEFERASIROX
     Dosage: UNK
     Route: 048
     Dates: start: 201409
  2. FUROSEMIDE. [Concomitant]
     Active Substance: FUROSEMIDE
     Indication: CARDIAC DISORDER
     Dosage: UNK
     Route: 065
  3. EXJADE [Suspect]
     Active Substance: DEFERASIROX
     Indication: MYELODYSPLASTIC SYNDROME
     Dosage: 1500 MG, QD
     Route: 048
     Dates: start: 20130822
  4. EXJADE [Suspect]
     Active Substance: DEFERASIROX
     Dosage: 1500 MG
     Route: 048
     Dates: start: 20141001
  5. SPIRONOLACTONE. [Concomitant]
     Active Substance: SPIRONOLACTONE
     Indication: CARDIAC DISORDER
     Route: 065
  6. EXJADE [Suspect]
     Active Substance: DEFERASIROX
     Dosage: 2125 MG, QD
     Route: 048
     Dates: start: 20130922, end: 20131211
  7. PREVISCAN [Concomitant]
     Active Substance: FLUINDIONE
     Indication: ATRIAL FIBRILLATION
     Dosage: UNK
     Route: 065
  8. BISOPROLOL [Concomitant]
     Active Substance: BISOPROLOL
     Indication: CARDIAC DISORDER
     Dosage: 10 MG, QD
     Route: 065

REACTIONS (4)
  - Nephroangiosclerosis [Not Recovered/Not Resolved]
  - Off label use [Unknown]
  - Pneumonia [Fatal]
  - Renal failure [Not Recovered/Not Resolved]

NARRATIVE: CASE EVENT DATE: 20130823
